FAERS Safety Report 7407294-9 (Version None)
Quarter: 2011Q2

REPORT INFORMATION
  Report Type: 
  Country: None (occurrence: None)
  Receive Date: 20110411
  Receipt Date: 20110330
  Transmission Date: 20111010
  Serious: Yes (Other)
  Sender: FDA-Public Use
  Company Number: PHHY2011JP21924

PATIENT
  Age: 78 Year
  Sex: Female

DRUGS (2)
  1. EXFORGE [Suspect]
     Indication: HYPERTENSION
     Dosage: 1 DF, DAILY
     Route: 048
  2. PRAVASTATIN SODIUM [Concomitant]
     Dosage: 5 MG, UNK
     Route: 048

REACTIONS (2)
  - TONGUE HAEMORRHAGE [None]
  - SWOLLEN TONGUE [None]
